FAERS Safety Report 10426864 (Version 1)
Quarter: 2014Q3

REPORT INFORMATION
  Report Type: Spontaneous
  Country: US (occurrence: None)
  Receive Date: 20140902
  Receipt Date: 20140902
  Transmission Date: 20150326
  Serious: Yes (Other)
  Sender: FDA-Public Use
  Company Number: None

PATIENT
  Age: 56 Year
  Sex: Female
  Weight: 83.92 kg

DRUGS (1)
  1. LEFLUNOMIDE 20MG MFG HERITAGE/WALGREEN^S [Suspect]
     Active Substance: LEFLUNOMIDE
     Indication: RHEUMATOID ARTHRITIS
     Dosage: 1 TABLET DAILY, ONCE DAILY
     Dates: start: 20140429, end: 20140709

REACTIONS (1)
  - Alopecia [None]

NARRATIVE: CASE EVENT DATE: 20140429
